FAERS Safety Report 8531841-7 (Version None)
Quarter: 2012Q3

REPORT INFORMATION
  Report Type: 
  Country: None (occurrence: None)
  Receive Date: 20120723
  Receipt Date: 20120717
  Transmission Date: 20120928
  Serious: No
  Sender: FDA-Public Use
  Company Number: US-PFIZER INC-2012142893

PATIENT
  Sex: Male
  Weight: 97.506 kg

DRUGS (2)
  1. ADVIL [Suspect]
     Dosage: UNK
     Dates: start: 20120522
  2. METFORMIN HCL [Suspect]
     Dosage: 1000 MG, UNK
     Dates: start: 20120522, end: 20120601

REACTIONS (4)
  - DIARRHOEA [None]
  - WRONG DRUG ADMINISTERED [None]
  - HEADACHE [None]
  - MALAISE [None]
